FAERS Safety Report 11146395 (Version 1)
Quarter: 2015Q2

REPORT INFORMATION
  Report Type: Spontaneous
  Country: US (occurrence: US)
  Receive Date: 20150528
  Receipt Date: 20150528
  Transmission Date: 20150821
  Serious: No
  Sender: FDA-Public Use
  Company Number: US-ELI_LILLY_AND_COMPANY-US201504010726

PATIENT
  Sex: Female
  Weight: 56.24 kg

DRUGS (4)
  1. ADCIRCA [Suspect]
     Active Substance: TADALAFIL
     Indication: PRODUCT USED FOR UNKNOWN INDICATION
     Dosage: UNK, UNKNOWN
     Route: 065
  2. SILDENAFIL. [Concomitant]
     Active Substance: SILDENAFIL
  3. ORENITRAM [Suspect]
     Active Substance: TREPROSTINIL
     Indication: PULMONARY HYPERTENSION
     Dosage: 12.5 MG, EVERY 8 HRS
     Route: 048
     Dates: start: 20140529
  4. REMODULIN [Suspect]
     Active Substance: TREPROSTINIL
     Indication: PRODUCT USED FOR UNKNOWN INDICATION
     Dosage: 80 DF, UNK
     Route: 042
     Dates: start: 20090127

REACTIONS (3)
  - Nausea [Unknown]
  - Headache [Unknown]
  - Weight decreased [Unknown]
